FAERS Safety Report 14968781 (Version 1)
Quarter: 2018Q2

REPORT INFORMATION
  Report Type: Spontaneous
  Country: CN (occurrence: CN)
  Receive Date: 20180604
  Receipt Date: 20180604
  Transmission Date: 20180711
  Serious: Yes (Hospitalization, Other)
  Sender: FDA-Public Use
  Company Number: CN-PFIZER INC-2018223612

PATIENT
  Age: 27 Year
  Sex: Male
  Weight: 60 kg

DRUGS (3)
  1. ZOLOFT [Suspect]
     Active Substance: SERTRALINE HYDROCHLORIDE
     Indication: BIPOLAR DISORDER
     Dosage: 100 MG, 1X/DAY
     Route: 048
     Dates: start: 20180322, end: 20180402
  2. OLANZAPINE. [Suspect]
     Active Substance: OLANZAPINE
     Indication: BIPOLAR DISORDER
     Dosage: 5 MG, 2X/DAY
     Route: 048
     Dates: start: 20180322, end: 20180402
  3. LITHIUM CARBONATE. [Suspect]
     Active Substance: LITHIUM CARBONATE
     Indication: BIPOLAR DISORDER
     Dosage: 0.3 G, 3X/DAY
     Route: 048
     Dates: start: 20180321, end: 20180402

REACTIONS (3)
  - Extrapyramidal disorder [Recovering/Resolving]
  - Renal impairment [Recovering/Resolving]
  - Dyschezia [Recovering/Resolving]

NARRATIVE: CASE EVENT DATE: 20180330
